FAERS Safety Report 14340378 (Version 2)
Quarter: 2018Q3

REPORT INFORMATION
  Report Type: Spontaneous
  Country: FI (occurrence: FI)
  Receive Date: 20180101
  Receipt Date: 20180723
  Transmission Date: 20181010
  Serious: Yes (Hospitalization)
  Sender: FDA-Public Use
  Company Number: FI-ROCHE-2036637

PATIENT
  Age: 80 Year
  Sex: Female

DRUGS (14)
  1. APURIN [Concomitant]
     Active Substance: ALLOPURINOL
     Indication: PROPHYLAXIS
     Dosage: 300,MG,DAILY
     Route: 048
  2. LEUKERAN [Concomitant]
     Active Substance: CHLORAMBUCIL
     Indication: CHRONIC LYMPHOCYTIC LEUKAEMIA
     Dosage: 36,MG,DAILY
     Route: 048
     Dates: start: 20171129, end: 20171129
  3. DIFORMIN RETARD [Concomitant]
     Active Substance: METFORMIN HYDROCHLORIDE
     Indication: DIABETES MELLITUS
     Dosage: 750,MG,DAILY
     Route: 048
  4. PANADOL FORTE [Concomitant]
     Indication: PREMEDICATION
     Dosage: 2,G,DAILY
     Route: 048
     Dates: start: 20171129, end: 20171129
  5. DIAPAM (FINLAND) [Concomitant]
     Dosage: 5,MG,X1
     Route: 048
     Dates: start: 20171129, end: 20171129
  6. ORADEXON [Concomitant]
     Active Substance: DEXAMETHASONE
     Indication: PREMEDICATION
     Dosage: 20,MG,DAILY
     Route: 042
     Dates: start: 20171129, end: 20171129
  7. GAZYVARO [Suspect]
     Active Substance: OBINUTUZUMAB
     Indication: CHRONIC LYMPHOCYTIC LEUKAEMIA
     Route: 042
     Dates: start: 20171129, end: 20171129
  8. PANADOL [Concomitant]
     Active Substance: ACETAMINOPHEN
     Dosage: 1.33,G,DAILY
     Route: 048
  9. SOLU?CORTEF [Concomitant]
     Active Substance: HYDROCORTISONE SODIUM SUCCINATE
     Dosage: 300,MG,DAILY
     Route: 042
     Dates: start: 20171129, end: 20171129
  10. STELLA [Concomitant]
     Dosage: ,,AS NECESSARY
     Route: 048
  11. PREDNISOLON [Concomitant]
     Active Substance: PREDNISOLONE
     Dosage: 40,MG,DAILY
     Route: 048
  12. SIMVASTATIN. [Concomitant]
     Active Substance: SIMVASTATIN
     Dosage: 10,MG,DAILY
     Route: 048
  13. ATOSIL [Concomitant]
     Active Substance: PROMETHAZINE HYDROCHLORIDE
     Indication: PREMEDICATION
     Dosage: 50,MG,DAILY
     Route: 042
     Dates: start: 20171129, end: 20171129
  14. OXYNORM [Concomitant]
     Active Substance: OXYCODONE HYDROCHLORIDE
     Dosage: 5,MG,X1
     Route: 048
     Dates: start: 20171129, end: 20171129

REACTIONS (9)
  - Somnolence [Recovered/Resolved]
  - Blood pressure decreased [Recovered/Resolved]
  - Oxygen saturation decreased [Recovered/Resolved]
  - Nausea [Recovered/Resolved]
  - Seizure [Recovered/Resolved]
  - Vomiting [Not Recovered/Not Resolved]
  - Bradycardia [Recovered/Resolved]
  - Dizziness [Not Recovered/Not Resolved]
  - Loss of consciousness [Recovered/Resolved]

NARRATIVE: CASE EVENT DATE: 20171129
